FAERS Safety Report 7006283-6 (Version None)
Quarter: 2010Q3

REPORT INFORMATION
  Report Type: 
  Country: None (occurrence: None)
  Receive Date: 20100921
  Receipt Date: 20100913
  Transmission Date: 20110219
  Serious: Yes (Other)
  Sender: FDA-Public Use
  Company Number: BR-ABBOTT-09P-020-0605288-00

PATIENT
  Sex: Female
  Weight: 88 kg

DRUGS (15)
  1. HUMIRA [Suspect]
     Indication: RHEUMATOID ARTHRITIS
     Route: 058
     Dates: start: 20090601
  2. PREDNISONE [Concomitant]
     Indication: ARTHRALGIA
     Route: 048
  3. PREDNISONE [Concomitant]
     Route: 048
  4. EUTIROX [Concomitant]
     Indication: HYPOTHYROIDISM
     Route: 048
  5. CALCIUM CARBONATE [Concomitant]
     Indication: BONE DISORDER
     Route: 048
  6. OMEPRAZOLE [Concomitant]
     Indication: GASTRIC DISORDER
     Route: 048
  7. METHOTREXATE [Concomitant]
     Indication: RHEUMATOID ARTHRITIS
     Route: 048
  8. CARBAMAZEPINE [Concomitant]
     Indication: EPILEPSY
     Route: 048
  9. ERITROPOYETINE [Concomitant]
     Indication: ANAEMIA
     Route: 065
     Dates: start: 20090801
  10. DIPYRONE [Concomitant]
     Indication: PAIN
     Dosage: 40 DROPS EVERY 6 HOURS
     Route: 048
  11. METAMIZOLE [Concomitant]
     Indication: PAIN
     Dosage: 40 DROPS EACH 6 HOURS
     Route: 048
  12. PURAN T4 [Concomitant]
     Indication: HYPOTHYROIDISM
     Route: 048
  13. FOLIC ACID [Concomitant]
     Indication: ANAEMIA
     Route: 048
  14. FOLINIC ACID [Concomitant]
     Indication: ANAEMIA
     Route: 048
  15. CLEXANE [Concomitant]
     Indication: THROMBOSIS PROPHYLAXIS
     Route: 058
     Dates: start: 20100813

REACTIONS (8)
  - ANAEMIA [None]
  - APPLICATION SITE PAIN [None]
  - ARTHRALGIA [None]
  - ARTHROPATHY [None]
  - BONE EROSION [None]
  - SWELLING [None]
  - WEIGHT DECREASED [None]
  - WEIGHT INCREASED [None]
